FAERS Safety Report 16970914 (Version 2)
Quarter: 2019Q4

REPORT INFORMATION
  Report Type: Report from Study
  Country: US (occurrence: US)
  Receive Date: 20191029
  Receipt Date: 20191112
  Transmission Date: 20200122
  Serious: Yes (Hospitalization, Other)
  Sender: FDA-Public Use
  Company Number: US-GILEAD-2019-0435105

PATIENT
  Age: 30 Year
  Sex: Male

DRUGS (22)
  1. ACETAMINOPHEN. [Concomitant]
     Active Substance: ACETAMINOPHEN
  2. GABAPENTIN. [Concomitant]
     Active Substance: GABAPENTIN
  3. PREVACID [Concomitant]
     Active Substance: LANSOPRAZOLE
  4. ROZEREM [Concomitant]
     Active Substance: RAMELTEON
  5. EFFEXOR [Concomitant]
     Active Substance: VENLAFAXINE HYDROCHLORIDE
  6. LEVALBUTEROL HCL [Concomitant]
     Active Substance: LEVALBUTEROL HYDROCHLORIDE
  7. CLONAZEPAM. [Concomitant]
     Active Substance: CLONAZEPAM
  8. AZITHROMYCIN ANHYDROUS. [Concomitant]
     Active Substance: AZITHROMYCIN ANHYDROUS
  9. CREON [Concomitant]
     Active Substance: PANCRELIPASE AMYLASE\PANCRELIPASE LIPASE\PANCRELIPASE PROTEASE
  10. LORAZEPAM. [Concomitant]
     Active Substance: LORAZEPAM
  11. LEVOTHYROXINE SODIUM. [Concomitant]
     Active Substance: LEVOTHYROXINE SODIUM
  12. ARIPIPRAZOLE. [Concomitant]
     Active Substance: ARIPIPRAZOLE
  13. BUPROPION HYDROCHLORIDE. [Concomitant]
     Active Substance: BUPROPION HYDROCHLORIDE
  14. CLINDAMYCIN/BENZOYL PEROXIDE [Concomitant]
     Active Substance: BENZOYL PEROXIDE\CLINDAMYCIN PHOSPHATE
  15. CALCIUM CITRATE + D [Concomitant]
     Active Substance: CALCIUM CITRATE\CHOLECALCIFEROL
  16. AZTREONAM LYSINE [Suspect]
     Active Substance: AZTREONAM LYSINE
     Indication: CYSTIC FIBROSIS
     Dosage: 75 MG, TID
     Route: 055
     Dates: start: 2016
  17. TEMAZEPAM. [Concomitant]
     Active Substance: TEMAZEPAM
  18. IBUPROFEN. [Concomitant]
     Active Substance: IBUPROFEN
  19. AZTREONAM. [Concomitant]
     Active Substance: AZTREONAM
  20. MIRTAZAPINE. [Concomitant]
     Active Substance: MIRTAZAPINE
  21. PULMOZYME [Concomitant]
     Active Substance: DORNASE ALFA
  22. AQUADEKS [Concomitant]
     Active Substance: MINERALS\VITAMINS

REACTIONS (2)
  - Cystic fibrosis [Unknown]
  - Infection [Unknown]

NARRATIVE: CASE EVENT DATE: 20190902
